FAERS Safety Report 8418687-5 (Version None)
Quarter: 2012Q2

REPORT INFORMATION
  Report Type: 
  Country: None (occurrence: None)
  Receive Date: 20120607
  Receipt Date: 20120530
  Transmission Date: 20120825
  Serious: Yes (Hospitalization)
  Sender: FDA-Public Use
  Company Number: US-BAYER-2012-055157

PATIENT
  Age: 18 Year
  Sex: Female
  Weight: 82.54 kg

DRUGS (18)
  1. SYNTHROID [Concomitant]
     Indication: HYPOTHYROIDISM
     Dosage: 50 UNK, UNK
     Dates: start: 20071102, end: 20110728
  2. BUPROPRION HCL [Concomitant]
     Dosage: 150 MG, UNK
     Dates: start: 20071129, end: 20081019
  3. TRICOR [Concomitant]
     Dosage: 145 MG, UNK
     Dates: start: 20071215, end: 20100920
  4. LOTRONEX [Concomitant]
     Indication: IRRITABLE BOWEL SYNDROME
     Dosage: 1 MG, UNK
     Dates: start: 20091228, end: 20120228
  5. ALBUTEROL [Concomitant]
  6. LEVAQUIN [Concomitant]
     Indication: PNEUMONIA
  7. ALDACTONE [Concomitant]
  8. SPIRONOLACTONE [Concomitant]
     Dosage: 25 MG, UNK
     Dates: start: 20071213, end: 20081217
  9. LANSOPRAZOLE [Concomitant]
     Dosage: 30 MG, UNK
     Dates: start: 20091206, end: 20110728
  10. YAZ [Suspect]
  11. VYTORIN [Concomitant]
     Dosage: 10/20
     Dates: start: 20080306, end: 20091222
  12. ASMANEX TWISTHALER [Concomitant]
  13. SIMVASTATIN [Concomitant]
     Indication: HYPERLIPIDAEMIA
     Dosage: 40 MG, UNK
     Dates: start: 20100405, end: 20110728
  14. OMEPRAZOLE [Concomitant]
  15. NASONEX [Concomitant]
  16. PREVACID [Concomitant]
     Indication: GASTROOESOPHAGEAL REFLUX DISEASE
  17. DROSPIRENONE AND ETHINYL ESTRADIOL [Suspect]
  18. LEVOTHYROXINE SODIUM [Concomitant]

REACTIONS (2)
  - PULMONARY EMBOLISM [None]
  - BILIARY DYSKINESIA [None]
